FAERS Safety Report 4753737-9 (Version None)
Quarter: 2005Q3

REPORT INFORMATION
  Report Type: 
  Country: None (occurrence: None)
  Receive Date: 20050818
  Receipt Date: 20050804
  Transmission Date: 20060218
  Serious: Yes (Disabling)
  Sender: FDA-Public Use
  Company Number: 2005-131301-NL

PATIENT
  Age: 58 Year
  Sex: Male

DRUGS (2)
  1. TICE BCG [Suspect]
     Indication: RECURRENT CANCER
     Dosage: 1 CFU WEEKLY
     Route: 043
  2. TICE BCG [Suspect]
     Indication: TRANSITIONAL CELL CARCINOMA
     Dosage: 1 CFU WEEKLY
     Route: 043

REACTIONS (7)
  - AUTOIMMUNE DISORDER [None]
  - CATARACT NUCLEAR [None]
  - COLOUR BLINDNESS [None]
  - PHOTOPHOBIA [None]
  - RETINOPATHY [None]
  - VISUAL ACUITY REDUCED [None]
  - VISUAL FIELD DEFECT [None]
